FAERS Safety Report 9274614 (Version 1)
Quarter: 2013Q2

REPORT INFORMATION
  Report Type: Spontaneous
  Country: US (occurrence: None)
  Receive Date: 20130429
  Receipt Date: 20130429
  Transmission Date: 20140414
  Serious: Yes (Hospitalization, Other)
  Sender: FDA-Public Use
  Company Number: 20130196

PATIENT
  Age: 29 Year
  Sex: Female
  Weight: 73 kg

DRUGS (3)
  1. MAGNESIUM SULFATE [Suspect]
     Indication: PRE-ECLAMPSIA
     Dosage: 1.6 G/HOUR
     Route: 042
  2. MAGNESIUM SULFATE [Suspect]
     Dosage: 1.6 G/HOUR
     Route: 042
  3. FUROSEMIDE [Suspect]

REACTIONS (13)
  - Delayed recovery from anaesthesia [None]
  - Toxicity to various agents [None]
  - Metabolic acidosis [None]
  - Caesarean section [None]
  - Fatigue [None]
  - Somnolence [None]
  - Loss of consciousness [None]
  - Unresponsive to stimuli [None]
  - Respiratory acidosis [None]
  - Exposure during pregnancy [None]
  - Incorrect dose administered [None]
  - Wrong technique in drug usage process [None]
  - Hypermagnesaemia [None]
